FAERS Safety Report 8923098 (Version 1)
Quarter: 2012Q4

REPORT INFORMATION
  Report Type: 
  Country: BR (occurrence: BR)
  Receive Date: 20121124
  Receipt Date: 20121124
  Transmission Date: 20130627
  Serious: Yes (Hospitalization, Other)
  Sender: FDA-Public Use
  Company Number: PHHY2012BR107232

PATIENT
  Sex: Male

DRUGS (3)
  1. DIOVAN AMLO FIX [Suspect]
     Indication: HYPERTENSION
     Dosage: 1 DF, Daily
     Route: 048
     Dates: start: 2010
  2. ASPIRIN [Concomitant]
     Indication: ANTICOAGULANT THERAPY
     Dosage: 1 DF, Daily
     Route: 048
  3. SINVASCOR [Concomitant]
     Dosage: 1 DF, Daily
     Route: 048

REACTIONS (3)
  - Venous occlusion [Recovering/Resolving]
  - Carcinoid tumour of the prostate [Not Recovered/Not Resolved]
  - Palpitations [Recovered/Resolved]
